FAERS Safety Report 25476715 (Version 2)
Quarter: 2025Q3

REPORT INFORMATION
  Report Type: Spontaneous
  Country: EU (occurrence: EU)
  Receive Date: 20250625
  Receipt Date: 20250704
  Transmission Date: 20251021
  Serious: Yes (Disabling)
  Sender: CELLTRION
  Company Number: None

PATIENT

DRUGS (3)
  1. INFLIXIMAB [Suspect]
     Active Substance: INFLIXIMAB
     Indication: Colitis ulcerative
     Route: 058
     Dates: start: 20240209, end: 20250104
  2. MESSALAZINA [Concomitant]
     Route: 048
  3. DENILLE [Concomitant]
     Route: 048

REACTIONS (3)
  - Palmoplantar pustulosis [Recovered/Resolved]
  - Dermatitis bullous [Recovered/Resolved]
  - Intentional product use issue [Unknown]

NARRATIVE: CASE EVENT DATE: 20241210
